FAERS Safety Report 6962853-2 (Version None)
Quarter: 2010Q3

REPORT INFORMATION
  Report Type: 
  Country: None (occurrence: None)
  Receive Date: 20100823
  Receipt Date: 20100603
  Transmission Date: 20110219
  Serious: No
  Sender: FDA-Public Use
  Company Number: 013237

PATIENT
  Sex: Female
  Weight: 47 kg

DRUGS (7)
  1. CIMZIA [Suspect]
     Indication: CROHN'S DISEASE
     Dosage: 400 MG 1X/2 WEEKS SUBCUTANEOUS
     Route: 058
     Dates: start: 20100503
  2. CIMZIA [Suspect]
     Indication: RHEUMATOID ARTHRITIS
     Dosage: 400 MG 1X/2 WEEKS SUBCUTANEOUS
     Route: 058
     Dates: start: 20100503
  3. POTASSIUM [Concomitant]
  4. CALCIUM [Concomitant]
  5. VICODIN [Concomitant]
  6. ALPRAZOLAM [Concomitant]
  7. PREDNISONE [Concomitant]

REACTIONS (2)
  - INFLUENZA [None]
  - MUSCULOSKELETAL STIFFNESS [None]
